FAERS Safety Report 18753773 (Version 1)
Quarter: 2021Q1

REPORT INFORMATION
  Report Type: Report from Study
  Country: None (occurrence: US)
  Receive Date: 20210118
  Receipt Date: 20210118
  Transmission Date: 20210419
  Serious: Yes (Hospitalization)
  Sender: FDA-Public Use
  Company Number: US-ABBVIE-21K-163-3726251-00

PATIENT
  Sex: Female

DRUGS (2)
  1. HUMIRA [Suspect]
     Active Substance: ADALIMUMAB
     Indication: CROHN^S DISEASE
     Route: 058
  2. HUMIRA [Suspect]
     Active Substance: ADALIMUMAB
     Indication: RHEUMATOID ARTHRITIS

REACTIONS (9)
  - Paresis [Not Recovered/Not Resolved]
  - Brain injury [Not Recovered/Not Resolved]
  - Anosmia [Not Recovered/Not Resolved]
  - Speech rehabilitation [Recovering/Resolving]
  - Rheumatoid vasculitis [Unknown]
  - Ageusia [Not Recovered/Not Resolved]
  - Combined immunodeficiency [Not Recovered/Not Resolved]
  - Encephalitis [Unknown]
  - Unevaluable event [Not Recovered/Not Resolved]
